FAERS Safety Report 11852177 (Version 12)
Quarter: 2016Q3

REPORT INFORMATION
  Report Type: Report from Study
  Country: CO (occurrence: CO)
  Receive Date: 20151218
  Receipt Date: 20160909
  Transmission Date: 20161109
  Serious: Yes (Hospitalization)
  Sender: FDA-Public Use
  Company Number: PHHY2015CO166159

PATIENT
  Age: 65 Year
  Sex: Female
  Weight: 50 kg

DRUGS (13)
  1. REVOLADE [Suspect]
     Active Substance: ELTROMBOPAG
     Indication: IMMUNE THROMBOCYTOPENIC PURPURA
     Dosage: 25 MG, QD
     Route: 048
     Dates: start: 20130909
  2. VITAMIN K [Concomitant]
     Active Substance: PHYTONADIONE
     Indication: PRODUCT USED FOR UNKNOWN INDICATION
     Dosage: UNK, QD
     Route: 048
  3. CIPROFLOXACIN. [Concomitant]
     Active Substance: CIPROFLOXACIN
     Indication: PRODUCT USED FOR UNKNOWN INDICATION
     Dosage: 500 MG, Q12H
     Route: 048
  4. FERROUS SULFATE. [Concomitant]
     Active Substance: FERROUS SULFATE
     Indication: PRODUCT USED FOR UNKNOWN INDICATION
     Dosage: 200 MG, QD
     Route: 048
  5. HIDROXIUREA [Concomitant]
     Active Substance: HYDROXYUREA
     Indication: PRODUCT USED FOR UNKNOWN INDICATION
     Dosage: 500 MG, BID
     Route: 048
  6. FERROUS SULFATE. [Concomitant]
     Active Substance: FERROUS SULFATE
     Dosage: 300 MG, QD
     Route: 048
  7. LEVOTHYROXINE. [Concomitant]
     Active Substance: LEVOTHYROXINE
     Indication: HYPOTHYROIDISM
     Dosage: 50 MG, QD
     Route: 048
  8. CALCIUM + VITAMIN D3 [Concomitant]
     Active Substance: CALCIUM CARBONATE\CHOLECALCIFEROL
     Indication: PRODUCT USED FOR UNKNOWN INDICATION
     Dosage: 600 MG, QD
     Route: 048
  9. PREDNISOLONE. [Concomitant]
     Active Substance: PREDNISOLONE
     Dosage: 50 MG, QD
     Route: 048
  10. CALCIUM [Concomitant]
     Active Substance: CALCIUM
     Indication: PRODUCT USED FOR UNKNOWN INDICATION
     Dosage: 600 MG, QD
     Route: 048
  11. PREDNISONE. [Concomitant]
     Active Substance: PREDNISONE
     Indication: PRODUCT USED FOR UNKNOWN INDICATION
     Dosage: 50 MG, QD
     Route: 065
  12. PREDNISOLONE. [Concomitant]
     Active Substance: PREDNISOLONE
     Indication: PRODUCT USED FOR UNKNOWN INDICATION
     Dosage: 5 MG, QD
     Route: 048
  13. ERYTHROPOIETIN [Concomitant]
     Active Substance: ERYTHROPOIETIN
     Indication: PRODUCT USED FOR UNKNOWN INDICATION
     Dosage: UNK, QD
     Route: 048

REACTIONS (25)
  - Head injury [Unknown]
  - Skin discolouration [Unknown]
  - Tremor [Unknown]
  - Lip blister [Unknown]
  - Fall [Unknown]
  - Thrombosis [Unknown]
  - Platelet count decreased [Recovering/Resolving]
  - Mood altered [Unknown]
  - Pyrexia [Unknown]
  - Cystitis [Recovered/Resolved]
  - Kidney infection [Unknown]
  - Acne [Unknown]
  - Urinary tract infection [Recovered/Resolved]
  - Seizure [Unknown]
  - Contusion [Recovering/Resolving]
  - Disorientation [Unknown]
  - Oral pain [Unknown]
  - Mouth haemorrhage [Not Recovered/Not Resolved]
  - Weight decreased [Unknown]
  - Blister [Unknown]
  - Asthenia [Unknown]
  - Dizziness [Unknown]
  - Skull fracture [Unknown]
  - Tonsillitis [Unknown]
  - Oral mucosal blistering [Unknown]

NARRATIVE: CASE EVENT DATE: 20150109
